FAERS Safety Report 9671675 (Version 1)
Quarter: 2013Q4

REPORT INFORMATION
  Report Type: Spontaneous
  Country: US (occurrence: US)
  Receive Date: 20131106
  Receipt Date: 20131106
  Transmission Date: 20140711
  Serious: No
  Sender: FDA-Public Use
  Company Number: US-PFIZER INC-2013312839

PATIENT
  Age: 55 Year
  Sex: Female
  Weight: 52.15 kg

DRUGS (2)
  1. PREMARIN [Suspect]
     Indication: MENOPAUSAL SYMPTOMS
     Dosage: UNK, 2X/WEEK
     Route: 067
     Dates: start: 2012
  2. PREMARIN [Suspect]
     Dosage: UNK, 2X/WEEK
     Route: 067

REACTIONS (4)
  - Vulvovaginal dryness [Unknown]
  - Vulvovaginal discomfort [Unknown]
  - Vaginal infection [Unknown]
  - Vulvovaginal discomfort [Unknown]
